FAERS Safety Report 16837930 (Version 5)
Quarter: 2020Q2

REPORT INFORMATION
  Report Type: Spontaneous
  Country: US (occurrence: US)
  Receive Date: 20190923
  Receipt Date: 20200429
  Transmission Date: 20200713
  Serious: Yes (Hospitalization)
  Sender: FDA-Public Use
  Company Number: US-BIOGEN-2019BI00766432

PATIENT
  Age: 51 Year
  Sex: Female

DRUGS (2)
  1. TYSABRI [Suspect]
     Active Substance: NATALIZUMAB
     Indication: MULTIPLE SCLEROSIS
     Route: 065
     Dates: start: 20081002, end: 20090409
  2. TYSABRI [Suspect]
     Active Substance: NATALIZUMAB
     Route: 065
     Dates: start: 20101209

REACTIONS (21)
  - Dysphonia [Unknown]
  - Visual impairment [Not Recovered/Not Resolved]
  - Perforation [Not Recovered/Not Resolved]
  - Memory impairment [Unknown]
  - Herpes zoster [Recovered/Resolved]
  - Pyrexia [Unknown]
  - Fatigue [Unknown]
  - Headache [Unknown]
  - Oral infection [Unknown]
  - Tooth loss [Unknown]
  - Infection [Unknown]
  - Nervousness [Unknown]
  - Migraine [Not Recovered/Not Resolved]
  - Urinary tract infection [Recovered/Resolved]
  - Feeding disorder [Unknown]
  - Malaise [Unknown]
  - Fungal infection [Not Recovered/Not Resolved]
  - Cystitis [Not Recovered/Not Resolved]
  - Mastication disorder [Not Recovered/Not Resolved]
  - Tooth infection [Recovered/Resolved]
  - Post procedural infection [Unknown]

NARRATIVE: CASE EVENT DATE: 20190905
